FAERS Safety Report 25890507 (Version 1)
Quarter: 2025Q4

REPORT INFORMATION
  Report Type: Spontaneous
  Country: US (occurrence: None)
  Receive Date: 20251006
  Receipt Date: 20251006
  Transmission Date: 20260118
  Serious: Yes (Life-Threatening, Hospitalization, Disabling, Other)
  Sender: FDA-CTU
  Company Number: None

PATIENT
  Age: 18 Year
  Sex: Male
  Weight: 76.05 kg

DRUGS (1)
  1. RISPERDAL [Suspect]
     Active Substance: RISPERIDONE
     Indication: Autism spectrum disorder
     Dates: start: 20160117, end: 20220627

REACTIONS (4)
  - Breast pain [None]
  - Breast swelling [None]
  - Suicide attempt [None]
  - Emotional distress [None]

NARRATIVE: CASE EVENT DATE: 20220323
